FAERS Safety Report 22165767 (Version 2)
Quarter: 2023Q2

REPORT INFORMATION
  Report Type: Spontaneous
  Country: US (occurrence: US)
  Receive Date: 20230403
  Receipt Date: 20230531
  Transmission Date: 20230722
  Serious: Yes (Hospitalization, Other)
  Sender: FDA-Public Use
  Company Number: US-MLMSERVICE-20230321-4177236-1

PATIENT
  Age: 9 Decade
  Sex: Male
  Weight: 136.1 kg

DRUGS (13)
  1. METHYLPREDNISOLONE [Suspect]
     Active Substance: METHYLPREDNISOLONE
     Indication: Organising pneumonia
     Dosage: 40 MILLIGRAM, TWO TIMES A DAY (40 MG IV EVERY 12 HOURS ON HOSPITAL DAY 8 AND HOSPITAL DAY 10)
     Route: 042
  2. METHYLPREDNISOLONE [Suspect]
     Active Substance: METHYLPREDNISOLONE
     Indication: COVID-19 pneumonia
     Dosage: 62.5 MILLIGRAM, 3 TIMES A DAY (62.5 MG IV EVERY 08 HOURS ON HOSPITAL DAY 4 AND HOSPITAL DAY 5)
     Route: 042
  3. METHYLPREDNISOLONE [Suspect]
     Active Substance: METHYLPREDNISOLONE
     Indication: COVID-19
     Dosage: 62.5 MILLIGRAM, FOUR TIMES/DAY (62.5 MG IV EVERY 06 HOURS ON HOSPITAL DAY 6)
     Route: 042
  4. METHYLPREDNISOLONE [Suspect]
     Active Substance: METHYLPREDNISOLONE
     Dosage: 62.5 MILLIGRAM, TWO TIMES A DAY (62.5 MG IV EVERY 12 HOURS ON HOSPITAL DAY 1 TO HOSPITAL DAY 3)
     Route: 042
  5. METHYLPREDNISOLONE [Suspect]
     Active Substance: METHYLPREDNISOLONE
     Dosage: 62.5 MILLIGRAM, TWO TIMES A DAY (62.5 MG IV EVERY 12 HOURS ON HOSPITAL DAY 7)
     Route: 042
  6. METHYLPREDNISOLONE [Suspect]
     Active Substance: METHYLPREDNISOLONE
     Dosage: 125 MILLIGRAM, ONCE A DAY (125 MG IV, 1 TIMES A DAY-AT 08:00 ON HOSPITAL DAY 19)
     Route: 042
  7. METHYLPREDNISOLONE [Suspect]
     Active Substance: METHYLPREDNISOLONE
     Dosage: 125 MILLIGRAM, FOUR TIMES/DAY (125 MG IV EVERY 06 HOURS ON HOSPITAL DAY 12)
     Route: 042
  8. METHYLPREDNISOLONE [Suspect]
     Active Substance: METHYLPREDNISOLONE
     Dosage: 125 MILLIGRAM, TWO TIMES A DAY (125 MG IV EVERY 12 HOURS ON HOSPITAL DAY 13 TO DAY 15, 125 MG IV, 2
     Route: 042
  9. METHYLPREDNISOLONE [Suspect]
     Active Substance: METHYLPREDNISOLONE
     Dosage: 125 MILLIGRAM, TWO TIMES A DAY (125 MG IV EVERY 12 HOURS ON HOSPITAL DAY 11)
     Route: 042
  10. PREDNISONE [Suspect]
     Active Substance: PREDNISONE
     Indication: Organising pneumonia
     Dosage: 60 MILLIGRAM, ONCE A DAY (ONCE A DAY EVERY MORNING ON DAY 20 AT 07:30 AND ON DAY 21 AT 08:00)
     Route: 048
  11. PREDNISONE [Suspect]
     Active Substance: PREDNISONE
     Indication: COVID-19 pneumonia
  12. PREDNISONE [Suspect]
     Active Substance: PREDNISONE
     Indication: COVID-19
  13. METFORMIN [Concomitant]
     Active Substance: METFORMIN HYDROCHLORIDE
     Indication: Hyperglycaemia
     Dosage: UNK
     Route: 065

REACTIONS (2)
  - Hyperglycaemia [Recovering/Resolving]
  - Off label use [Unknown]
